FAERS Safety Report 20061879 (Version 1)
Quarter: 2021Q4

REPORT INFORMATION
  Report Type: Spontaneous
  Country: US (occurrence: US)
  Receive Date: 20211112
  Receipt Date: 20211112
  Transmission Date: 20220304
  Serious: No
  Sender: FDA-Public Use
  Company Number: US-BAYER-2021A248456

PATIENT
  Sex: Female

DRUGS (2)
  1. MIRENA [Suspect]
     Active Substance: LEVONORGESTREL
     Indication: Intra-uterine contraceptive device insertion
     Dosage: 20?G/DAY
     Route: 015
     Dates: start: 20150402
  2. LYNPARZA [Concomitant]
     Active Substance: OLAPARIB
     Indication: Ovarian cancer

REACTIONS (2)
  - Anaemia [None]
  - Haemoglobin decreased [None]
